FAERS Safety Report 19507038 (Version 1)
Quarter: 2021Q3

REPORT INFORMATION
  Report Type: Report from Study
  Country: JP (occurrence: JP)
  Receive Date: 20210708
  Receipt Date: 20210708
  Transmission Date: 20211014
  Serious: Yes (Hospitalization)
  Sender: FDA-Public Use
  Company Number: JP-ROCHE-2864455

PATIENT
  Age: 67 Year
  Sex: Female
  Weight: 51.7 kg

DRUGS (29)
  1. APREPITANT. [Concomitant]
     Active Substance: APREPITANT
     Dosage: 125 MILLIGRAM, ONCE/3WEEKS
     Route: 048
     Dates: start: 20210511, end: 20210601
  2. FAMOTIDINE. [Concomitant]
     Active Substance: FAMOTIDINE
     Dosage: 20 MILLIGRAM, QD
     Route: 048
     Dates: start: 20210616, end: 20210618
  3. IRINOTECAN HYDROCHLORIDE. [Concomitant]
     Active Substance: IRINOTECAN HYDROCHLORIDE
     Dosage: 125 MILLIGRAM, ONCE/2WEEKS
     Route: 041
     Dates: start: 20210615
  4. DEXAMETHASONE SODIUM PHOSPHATE. [Concomitant]
     Active Substance: DEXAMETHASONE SODIUM PHOSPHATE
     Dosage: 9.9 MILLIGRAM, ONCE/3WEEKS
     Route: 042
     Dates: start: 20210615
  5. ISOSORBIDE MONONITRATE. [Concomitant]
     Active Substance: ISOSORBIDE MONONITRATE
     Indication: PROPHYLAXIS
     Dosage: 40 MILLIGRAM, BID
     Route: 048
     Dates: start: 20210609
  6. BEVACIZUMAB. [Suspect]
     Active Substance: BEVACIZUMAB
     Dosage: 280 MILLIGRAM, ONCE/3WEEKS
     Route: 041
     Dates: start: 20210615
  7. 5?FU [FLUOROURACIL] [Suspect]
     Active Substance: FLUOROURACIL
     Indication: COLORECTAL CANCER METASTATIC
     Route: 040
     Dates: start: 20210511, end: 20210603
  8. 5?FU [FLUOROURACIL] [Suspect]
     Active Substance: FLUOROURACIL
     Route: 041
     Dates: start: 20210511, end: 20210603
  9. 5?FU [FLUOROURACIL] [Suspect]
     Active Substance: FLUOROURACIL
     Route: 040
     Dates: start: 20210615
  10. OXALIPLATIN. [Concomitant]
     Active Substance: OXALIPLATIN
     Dosage: 120 MILLIGRAM, ONCE/2WEEKS
     Route: 041
     Dates: start: 20210615
  11. BAYASPIRIN [Concomitant]
     Active Substance: ASPIRIN
     Indication: PROPHYLAXIS
     Dosage: 100 MILLIGRAM, QD
     Route: 048
     Dates: start: 20210609
  12. BENIDIPINE HYDROCHLORIDE [Concomitant]
     Active Substance: BENIDIPINE HYDROCHLORIDE
     Indication: PROPHYLAXIS
     Dosage: 8 MILLIGRAM, BID
     Route: 048
     Dates: start: 20210609
  13. IRINOTECAN HYDROCHLORIDE. [Concomitant]
     Active Substance: IRINOTECAN HYDROCHLORIDE
     Indication: RECTAL CANCER
     Dosage: 125 MILLIGRAM, ONCE/2WEEKS
     Route: 041
     Dates: start: 20210511, end: 20210511
  14. CALCIUM LEVOFOLINATE [Concomitant]
     Active Substance: LEVOLEUCOVORIN CALCIUM
     Dosage: 290 MILLIGRAM, ONCE/3WEEKS
     Route: 041
     Dates: start: 20210615
  15. PALONOSETRON HYDROCHLORIDE. [Concomitant]
     Active Substance: PALONOSETRON HYDROCHLORIDE
     Dosage: 0.75 MILLIGRAM, ONCE/3WEEKS
     Route: 042
     Dates: start: 20210615
  16. DEXAMETHASONE. [Concomitant]
     Active Substance: DEXAMETHASONE
     Dosage: 8 MILLIGRAM, ONCE/2WEEKS
     Route: 048
     Dates: start: 20210616
  17. BEVACIZUMAB. [Suspect]
     Active Substance: BEVACIZUMAB
     Indication: COLORECTAL CANCER METASTATIC
     Dosage: ON 01/JUN/2021, SHE RECEIVED MOST RECENT DOSE OF IV BEVACIZUMAB 280 MILLIGRAM, ONCE/3WEEKS
     Route: 041
     Dates: start: 20210511
  18. IRINOTECAN HYDROCHLORIDE. [Concomitant]
     Active Substance: IRINOTECAN HYDROCHLORIDE
     Dosage: 125 MILLIGRAM, ONCE/2WEEKS
     Route: 041
     Dates: start: 20210601, end: 20210601
  19. APREPITANT. [Concomitant]
     Active Substance: APREPITANT
     Dosage: 125 MILLIGRAM, ONCE/3WEEKS
     Route: 048
     Dates: start: 20210616
  20. LOPERAMIDE [Concomitant]
     Active Substance: LOPERAMIDE
  21. VEMLIDY [Concomitant]
     Active Substance: TENOFOVIR ALAFENAMIDE FUMARATE
     Indication: PROPHYLAXIS
     Dosage: 25 MILLIGRAM, QD
     Route: 048
     Dates: start: 20210417
  22. OXALIPLATIN. [Concomitant]
     Active Substance: OXALIPLATIN
     Indication: RECTAL CANCER
     Dosage: 120 MILLIGRAM, ONCE/2WEEKS
     Route: 041
     Dates: start: 20210511, end: 20210601
  23. CALCIUM LEVOFOLINATE [Concomitant]
     Active Substance: LEVOLEUCOVORIN CALCIUM
     Indication: RECTAL CANCER
     Dosage: 290 MILLIGRAM, ONCE/3WEEKS
     Route: 041
     Dates: start: 20210511, end: 20210601
  24. DEXAMETHASONE. [Concomitant]
     Active Substance: DEXAMETHASONE
     Dosage: 8 MILLIGRAM, ONCE/3WEEKS
     Route: 048
     Dates: start: 20210512, end: 20210604
  25. 5?FU [FLUOROURACIL] [Suspect]
     Active Substance: FLUOROURACIL
     Route: 041
     Dates: start: 20210615
  26. APREPITANT. [Concomitant]
     Active Substance: APREPITANT
     Dosage: 125 MILLIGRAM, ONCE/3WEEKS
     Route: 048
     Dates: start: 20210512, end: 20210603
  27. PALONOSETRON HYDROCHLORIDE. [Concomitant]
     Active Substance: PALONOSETRON HYDROCHLORIDE
     Dosage: 0.75 MILLIGRAM, ONCE/3WEEKS
     Route: 042
     Dates: start: 20210511, end: 20210601
  28. DEXAMETHASONE SODIUM PHOSPHATE. [Concomitant]
     Active Substance: DEXAMETHASONE SODIUM PHOSPHATE
     Dosage: 9.9 MILLIGRAM, ONCE/3WEEKS
     Route: 042
     Dates: start: 20210511, end: 20210601
  29. APREPITANT. [Concomitant]
     Active Substance: APREPITANT
     Dosage: 125 MILLIGRAM, ONCE/3WEEKS
     Route: 048
     Dates: start: 20210615

REACTIONS (1)
  - Prinzmetal angina [Recovered/Resolved]

NARRATIVE: CASE EVENT DATE: 20210601
